FAERS Safety Report 4617676-6 (Version None)
Quarter: 2005Q1

REPORT INFORMATION
  Report Type: 
  Country: None (occurrence: None)
  Receive Date: 20050324
  Receipt Date: 20040312
  Transmission Date: 20050727
  Serious: Yes (Congenital Anomaly)
  Sender: FDA-Public Use
  Company Number: BR-ROCHE-361676

PATIENT
  Age: 1 Hour
  Sex: Female
  Weight: 2.8 kg

DRUGS (1)
  1. ROACUTAN [Suspect]
     Indication: ACNE
     Dates: start: 20031115, end: 20040218

REACTIONS (3)
  - CONGENITAL HEARING DISORDER [None]
  - DRUG EXPOSURE DURING PREGNANCY [None]
  - EAR MALFORMATION [None]
